FAERS Safety Report 5325040-X (Version None)
Quarter: 2007Q2

REPORT INFORMATION
  Report Type: 
  Country: None (occurrence: None)
  Receive Date: 20070515
  Receipt Date: 20070510
  Transmission Date: 20071010
  Serious: Yes (Other)
  Sender: FDA-Public Use
  Company Number: US-BRISTOL-MYERS SQUIBB COMPANY-13770441

PATIENT
  Age: 41 Year
  Sex: Male
  Weight: 87 kg

DRUGS (1)
  1. ENTECAVIR [Suspect]
     Indication: HEPATITIS B
     Route: 048
     Dates: start: 20060524

REACTIONS (2)
  - BLOOD HIV RNA DECREASED [None]
  - DRUG RESISTANCE [None]
